FAERS Safety Report 8872112 (Version 1)
Quarter: 2012Q4

REPORT INFORMATION
  Report Type: 
  Country: US (occurrence: US)
  Receive Date: 20121029
  Receipt Date: 20121029
  Transmission Date: 20130627
  Serious: Yes (Hospitalization, Other)
  Sender: FDA-Public Use
  Company Number: US-AMGEN-USASP2012068280

PATIENT
  Age: 49 None
  Sex: Female

DRUGS (1)
  1. ENBREL [Suspect]
     Indication: RHEUMATOID ARTHRITIS
     Dosage: 50 mg, qwk
     Dates: start: 19990619

REACTIONS (6)
  - Knee arthroplasty [Recovered/Resolved]
  - Arthrodesis [Recovered/Resolved]
  - Fracture nonunion [Recovered/Resolved]
  - Musculoskeletal stiffness [Not Recovered/Not Resolved]
  - Drug effect incomplete [Unknown]
  - Pleurisy [Not Recovered/Not Resolved]
